FAERS Safety Report 4305157-9 (Version None)
Quarter: 2004Q1

REPORT INFORMATION
  Report Type: 
  Country: None (occurrence: None)
  Receive Date: 20040223
  Receipt Date: 20031223
  Transmission Date: 20041129
  Serious: No
  Sender: FDA-Public Use
  Company Number: SU-2004-002051

PATIENT
  Age: 58 Year
  Sex: Male
  Weight: 120.2032 kg

DRUGS (3)
  1. BENICAR [Suspect]
     Indication: HYPERTENSION
     Dosage: MG QD PO
     Route: 048
     Dates: start: 20031201, end: 20031201
  2. VERELAN PM [Suspect]
     Dates: start: 20031201, end: 20031201
  3. INSULIN [Concomitant]

REACTIONS (4)
  - AMNESIA [None]
  - CHEST DISCOMFORT [None]
  - DISORIENTATION [None]
  - DISTURBANCE IN ATTENTION [None]
